FAERS Safety Report 9129207 (Version 1)
Quarter: 2013Q1

REPORT INFORMATION
  Report Type: Spontaneous
  Country: CN (occurrence: CN)
  Receive Date: 20130125
  Receipt Date: 20130125
  Transmission Date: 20140127
  Serious: Yes (Other)
  Sender: FDA-Public Use
  Company Number: PHHY2012CN124248

PATIENT
  Age: 44 Year
  Sex: Male
  Weight: 75 kg

DRUGS (1)
  1. VOTALIN [Suspect]
     Indication: GOUT
     Dosage: 2 DF, TID
     Route: 048
     Dates: start: 20090705, end: 20090710

REACTIONS (2)
  - Henoch-Schonlein purpura [Recovered/Resolved]
  - Purpura [Recovered/Resolved]
